FAERS Safety Report 12387505 (Version 2)
Quarter: 2016Q2

REPORT INFORMATION
  Report Type: Spontaneous
  Country: US (occurrence: US)
  Receive Date: 20160520
  Receipt Date: 20160617
  Transmission Date: 20160815
  Serious: Yes (Hospitalization, Other)
  Sender: FDA-Public Use
  Company Number: US-009507513-1605USA007876

PATIENT
  Age: 82 Year
  Sex: Male

DRUGS (1)
  1. CUBICIN [Suspect]
     Active Substance: DAPTOMYCIN
     Indication: BACTERAEMIA
     Dosage: UNK
     Dates: start: 20160509

REACTIONS (2)
  - Pancreatic carcinoma [Unknown]
  - Metastases to liver [Unknown]

NARRATIVE: CASE EVENT DATE: 201605
